FAERS Safety Report 18573800 (Version 1)
Quarter: 2020Q4

REPORT INFORMATION
  Report Type: Spontaneous
  Country: US (occurrence: US)
  Receive Date: 20201202
  Receipt Date: 20201202
  Transmission Date: 20210114
  Serious: Yes (Hospitalization)
  Sender: FDA-Public Use
  Company Number: None

PATIENT
  Age: 72 Year
  Sex: Male
  Weight: 133 kg

DRUGS (2)
  1. PRIMIDONE (PRIMIDONE 50MG TAB) [Suspect]
     Active Substance: PRIMIDONE
     Indication: ESSENTIAL TREMOR
     Route: 048
     Dates: start: 20160601, end: 20201009
  2. PREGABALIN (PREGABLIN 50MG CAP, ORAL) [Suspect]
     Active Substance: PREGABALIN
     Indication: NEUROPATHY PERIPHERAL
     Route: 048
     Dates: start: 20150501, end: 20201009

REACTIONS (6)
  - Sedation [None]
  - Toxicity to various agents [None]
  - Delirium [None]
  - Confusional state [None]
  - Encephalopathy [None]
  - Cerebral atrophy [None]

NARRATIVE: CASE EVENT DATE: 20201009
